FAERS Safety Report 4575745-3 (Version None)
Quarter: 2005Q1

REPORT INFORMATION
  Report Type: 
  Country: None (occurrence: None)
  Receive Date: 20050209
  Receipt Date: 20050131
  Transmission Date: 20050727
  Serious: Yes (Other)
  Sender: FDA-Public Use
  Company Number: US-GLAXOSMITHKLINE-A0542942A

PATIENT
  Age: 54 Year
  Sex: Female
  Weight: 137 kg

DRUGS (1)
  1. NICODERM CQ [Suspect]
     Route: 062
     Dates: start: 19950101

REACTIONS (3)
  - CHEST PAIN [None]
  - HYPOAESTHESIA [None]
  - MYOCARDIAL INFARCTION [None]
